FAERS Safety Report 12184695 (Version 1)
Quarter: 2016Q1

REPORT INFORMATION
  Report Type: Report from Study
  Country: JP (occurrence: JP)
  Receive Date: 20160316
  Receipt Date: 20160316
  Transmission Date: 20160526
  Serious: Yes (Death, Life-Threatening, Hospitalization, Other)
  Sender: FDA-Public Use
  Company Number: JP-VIFOR (INTERNATIONAL) INC.-VIT-2016-01184

PATIENT
  Age: 87 Year
  Sex: Female

DRUGS (7)
  1. MIRCERA [Suspect]
     Active Substance: METHOXY POLYETHYLENE GLYCOL-EPOETIN BETA
     Route: 058
     Dates: start: 20140109, end: 20140213
  2. NORVASC [Concomitant]
     Active Substance: AMLODIPINE BESYLATE
     Indication: NEPHROSCLEROSIS
     Route: 048
     Dates: start: 20140615
  3. OLMETEC [Concomitant]
     Active Substance: OLMESARTAN MEDOXOMIL
     Indication: NEPHROSCLEROSIS
     Route: 048
     Dates: end: 20140615
  4. LASIX [Concomitant]
     Active Substance: FUROSEMIDE
     Indication: NEPHROSCLEROSIS
     Route: 048
     Dates: end: 20140615
  5. MIRCERA [Suspect]
     Active Substance: METHOXY POLYETHYLENE GLYCOL-EPOETIN BETA
     Indication: NEPHROGENIC ANAEMIA
     Route: 058
     Dates: start: 20130411, end: 20131212
  6. WYTENS [Concomitant]
     Active Substance: GUANABENZ ACETATE
     Indication: NEPHROSCLEROSIS
     Route: 048
     Dates: start: 20140615
  7. ARTIST [Concomitant]
     Active Substance: CARVEDILOL
     Indication: NEPHROSCLEROSIS
     Route: 048
     Dates: start: 20140615

REACTIONS (6)
  - Sepsis [Fatal]
  - Decubitus ulcer [Unknown]
  - Venous thrombosis limb [Unknown]
  - Cerebral infarction [Recovering/Resolving]
  - Hypertension [Unknown]
  - Cellulitis [Fatal]

NARRATIVE: CASE EVENT DATE: 2014
